FAERS Safety Report 5670836-8 (Version None)
Quarter: 2008Q1

REPORT INFORMATION
  Report Type: 
  Country: None (occurrence: None)
  Receive Date: 20080318
  Receipt Date: 20080312
  Transmission Date: 20080703
  Serious: Yes (Other)
  Sender: FDA-Public Use
  Company Number: GB-BAYER-200810250BNE

PATIENT
  Age: 39 Year
  Sex: Female

DRUGS (1)
  1. BETAFERON [Suspect]
     Indication: MULTIPLE SCLEROSIS RELAPSE
     Route: 058

REACTIONS (2)
  - CHEST DISCOMFORT [None]
  - PALPITATIONS [None]
